FAERS Safety Report 23190458 (Version 1)
Quarter: 2023Q4

REPORT INFORMATION
  Report Type: Other
  Country: None (occurrence: IR)
  Receive Date: 20231116
  Receipt Date: 20231116
  Transmission Date: 20240110
  Serious: Yes (Life-Threatening, Hospitalization, Other)
  Sender: FDA-Public Use
  Company Number: IR-Eywa Pharma Inc.-2148343

PATIENT
  Age: 19 Year
  Sex: Female

DRUGS (3)
  1. BACLOFEN [Suspect]
     Active Substance: BACLOFEN
     Indication: Product used for unknown indication
     Route: 048
  2. VENLAFAXINE [Concomitant]
     Active Substance: VENLAFAXINE HYDROCHLORIDE
     Route: 065
  3. CLOMIPRAMINE [Concomitant]
     Active Substance: CLOMIPRAMINE
     Route: 065

REACTIONS (10)
  - Loss of consciousness [Recovered/Resolved]
  - Pneumomediastinum [Recovered/Resolved]
  - Toxicity to various agents [Recovered/Resolved]
  - Atelectasis [Recovered/Resolved]
  - Mania [Recovered/Resolved]
  - Catatonia [Recovered/Resolved]
  - Logorrhoea [Recovered/Resolved]
  - Agitation [Recovered/Resolved]
  - Hallucination, visual [Recovered/Resolved]
  - Intentional overdose [Unknown]
